FAERS Safety Report 18665311 (Version 3)
Quarter: 2021Q1

REPORT INFORMATION
  Report Type: Spontaneous
  Country: KR (occurrence: KR)
  Receive Date: 20201225
  Receipt Date: 20210208
  Transmission Date: 20210419
  Serious: Yes (Hospitalization, Other)
  Sender: FDA-Public Use
  Company Number: KR-TAKEDA-2020TUS058825

PATIENT
  Age: 53 Year
  Sex: Female

DRUGS (4)
  1. FOSRENOL [Suspect]
     Active Substance: LANTHANUM CARBONATE
     Indication: HYPERPHOSPHATAEMIA
     Dosage: 2.25 GRAM, 1/WEEK
     Route: 048
  2. PARICALCITOL. [Concomitant]
     Active Substance: PARICALCITOL
     Indication: HYPERPARATHYROIDISM SECONDARY
     Dosage: UNK
     Route: 065
  3. SEVELAMER CARBONATE. [Concomitant]
     Active Substance: SEVELAMER CARBONATE
     Indication: HYPERPARATHYROIDISM SECONDARY
     Route: 065
  4. CINACALCET. [Concomitant]
     Active Substance: CINACALCET
     Indication: HYPERPARATHYROIDISM SECONDARY
     Route: 065

REACTIONS (1)
  - Large intestine perforation [Recovered/Resolved]
